FAERS Safety Report 4562744-0 (Version None)
Quarter: 2005Q1

REPORT INFORMATION
  Report Type: 
  Country: None (occurrence: None)
  Receive Date: 20050124
  Receipt Date: 20050112
  Transmission Date: 20050727
  Serious: Yes (Hospitalization)
  Sender: FDA-Public Use
  Company Number: 211728

PATIENT
  Age: 62 Year
  Sex: Male

DRUGS (7)
  1. RITUXAN [Suspect]
     Indication: B-CELL LYMPHOMA
     Dosage: 500 MG, SINGLE, INTRAVENOUS
     Route: 042
     Dates: start: 20031029, end: 20031029
  2. CLADRIBINE [Suspect]
     Indication: B-CELL LYMPHOMA
     Dosage: 5.5 MG, SINGLE, INTRAVENOUS
     Route: 042
     Dates: start: 20031029, end: 20031029
  3. MITOXANTRONE(MITOXANRONE HYDROCHLORIDE) [Suspect]
     Indication: B-CELL LYMPHOMA
     Dosage: 15 MG, SINGLE, INTRAVENOUS
     Route: 042
     Dates: start: 20031029, end: 20031029
  4. DEXAMETHASONE [Concomitant]
  5. ZOPICLONE (ZOPICLONE) [Concomitant]
  6. ROXATIDINE (ROXATIDINE ACETATE HYDROCHLORIDE) [Concomitant]
  7. ALLOPURINOL [Concomitant]

REACTIONS (2)
  - HEPATIC FUNCTION ABNORMAL [None]
  - PANCYTOPENIA [None]
